FAERS Safety Report 8439965-X (Version None)
Quarter: 2012Q2

REPORT INFORMATION
  Report Type: 
  Country: None (occurrence: None)
  Receive Date: 20120615
  Receipt Date: 20120606
  Transmission Date: 20120825
  Serious: No
  Sender: FDA-Public Use
  Company Number: CA-TEVA-343107USA

PATIENT
  Sex: Female

DRUGS (2)
  1. COPAXONE [Suspect]
     Indication: MULTIPLE SCLEROSIS
  2. MODAFINIL [Concomitant]

REACTIONS (2)
  - FEELING ABNORMAL [None]
  - SOMNOLENCE [None]
